FAERS Safety Report 15074915 (Version 1)
Quarter: 2018Q2

REPORT INFORMATION
  Report Type: Report from Study
  Country: US (occurrence: US)
  Receive Date: 20180627
  Receipt Date: 20180627
  Transmission Date: 20180711
  Serious: No
  Sender: FDA-Public Use
  Company Number: US-SAOL THERAPEUTICS-2017SAO01609

PATIENT
  Sex: Female

DRUGS (2)
  1. BACLOFEN. [Suspect]
     Active Substance: BACLOFEN
     Dosage: 139.9 ?G, \DAY
     Route: 037
     Dates: end: 20170420
  2. BACLOFEN. [Suspect]
     Active Substance: BACLOFEN
     Dosage: 154.9 ?G, \DAY
     Route: 037
     Dates: start: 20170420

REACTIONS (2)
  - Pain [Recovered/Resolved]
  - Drug ineffective for unapproved indication [Unknown]

NARRATIVE: CASE EVENT DATE: 2017
